FAERS Safety Report 7535995-0 (Version None)
Quarter: 2011Q2

REPORT INFORMATION
  Report Type: 
  Country: None (occurrence: None)
  Receive Date: 20110602
  Receipt Date: 20110525
  Transmission Date: 20111010
  Serious: Yes (Death)
  Sender: FDA-Public Use
  Company Number: 2011-1600

PATIENT
  Age: 79 Year
  Sex: Male
  Weight: 77.1 kg

DRUGS (11)
  1. SINEMET [Concomitant]
  2. AMBIEN CR [Concomitant]
  3. MIRAPEX [Concomitant]
  4. RAPAFLO (SILODOSIN) (ALL OTHER THERAPEUTIC PRODUCTS) [Concomitant]
  5. APOKYN [Suspect]
     Indication: PARKINSON'S DISEASE
     Dosage: NOT REPORTED (0.2 ML, NOT REPORTED), SUBCUTANEOUS
     Route: 058
     Dates: start: 20110516, end: 20110518
  6. GLUCOPHAGE [Concomitant]
  7. TIGAN [Suspect]
     Indication: PROPHYLAXIS OF NAUSEA AND VOMITING
     Dosage: NOT REPORTED (NOT REPORTED, 3 IN 1 D), ORAL
     Route: 048
     Dates: start: 20110513, end: 20110518
  8. CELEXA [Concomitant]
  9. GLYCOPYRROLATE [Concomitant]
  10. FLUTICASONE NASAL SPRAY (FLUTICASONE) [Concomitant]
  11. JANUVIA (SITAGLIPTIN) 9ALL OTHER THERAPEUTIC PRODUCTS) [Concomitant]

REACTIONS (2)
  - DYSPHAGIA [None]
  - ASPIRATION [None]
